FAERS Safety Report 6230365-X (Version None)
Quarter: 2009Q2

REPORT INFORMATION
  Report Type: 
  Country: None (occurrence: None)
  Receive Date: 20090611
  Receipt Date: 20090608
  Transmission Date: 20091009
  Serious: Yes (Death)
  Sender: FDA-Public Use
  Company Number: 250532

PATIENT
  Age: 19 Year
  Sex: Male

DRUGS (3)
  1. ETOPOSIDE [Suspect]
     Indication: TESTICULAR GERM CELL CANCER METASTATIC
     Dates: start: 20080101, end: 20080101
  2. CISPLATIN [Suspect]
     Indication: TESTICULAR GERM CELL CANCER METASTATIC
     Dates: start: 20080101, end: 20080101
  3. IFOSFAMIDE [Suspect]
     Indication: TESTICULAR GERM CELL CANCER METASTATIC
     Dates: start: 20080101, end: 20080101

REACTIONS (5)
  - ACUTE RESPIRATORY DISTRESS SYNDROME [None]
  - BLOOD PRESSURE DIASTOLIC DECREASED [None]
  - BLOOD PRESSURE SYSTOLIC INCREASED [None]
  - HAEMOPTYSIS [None]
  - PYREXIA [None]
